FAERS Safety Report 7540873-7 (Version None)
Quarter: 2011Q2

REPORT INFORMATION
  Report Type: 
  Country: None (occurrence: None)
  Receive Date: 20110610
  Receipt Date: 20110530
  Transmission Date: 20111010
  Serious: Yes (Hospitalization)
  Sender: FDA-Public Use
  Company Number: IT-UCBSA-034577

PATIENT
  Sex: Female

DRUGS (8)
  1. MONOKET [Suspect]
     Indication: HYPERTENSION
     Route: 048
     Dates: start: 20080101
  2. METOPROLOL TARTRATE [Concomitant]
  3. TICLOPIDINE HCL [Concomitant]
  4. PANTOPRAZOLE [Concomitant]
  5. VALSARTAN  AND HYDROCHLOROTHIAZIDE [Suspect]
     Indication: HYPERTENSION
     Dosage: 160 MG/12.5 MG
     Route: 048
     Dates: start: 20080101, end: 20110302
  6. SIVASTIN [Concomitant]
  7. LEXOTAN [Concomitant]
  8. ENAPREN [Concomitant]

REACTIONS (1)
  - HYPOKALAEMIA [None]
